FAERS Safety Report 18730503 (Version 1)
Quarter: 2021Q1

REPORT INFORMATION
  Report Type: Spontaneous
  Country: PL (occurrence: PL)
  Receive Date: 20210112
  Receipt Date: 20210112
  Transmission Date: 20210419
  Serious: Yes (Other)
  Sender: FDA-Public Use
  Company Number: PL-PFIZER INC-2021009151

PATIENT
  Age: 58 Year
  Sex: Female
  Weight: 63 kg

DRUGS (1)
  1. SUTENT [Suspect]
     Active Substance: SUNITINIB MALATE
     Indication: RENAL CELL CARCINOMA
     Dosage: 50 MG, 1X/DAY
     Route: 048

REACTIONS (30)
  - Hyperglycaemia [Unknown]
  - Gastrooesophageal reflux disease [Unknown]
  - Anaemia [Unknown]
  - Leukopenia [Unknown]
  - Aspartate aminotransferase increased [Unknown]
  - Decreased appetite [Unknown]
  - Haemorrhoids [Unknown]
  - Neutropenia [Unknown]
  - Diarrhoea [Unknown]
  - Tenderness [Unknown]
  - Alanine aminotransferase increased [Unknown]
  - Thrombocytosis [Unknown]
  - Oral discomfort [Unknown]
  - Blood pressure increased [Unknown]
  - Taste disorder [Unknown]
  - Eructation [Unknown]
  - Hypothyroidism [Unknown]
  - Palmar-plantar erythrodysaesthesia syndrome [Unknown]
  - Back pain [Unknown]
  - Vomiting [Unknown]
  - Lymphopenia [Unknown]
  - Skin disorder [Unknown]
  - Thrombocytopenia [Unknown]
  - Vulvovaginal inflammation [Unknown]
  - Micturition disorder [Unknown]
  - Yellow skin [Unknown]
  - Chest pain [Unknown]
  - Oedema peripheral [Unknown]
  - Chronic kidney disease [Unknown]
  - Dyspepsia [Unknown]
